FAERS Safety Report 23570586 (Version 2)
Quarter: 2024Q2

REPORT INFORMATION
  Report Type: Spontaneous
  Country: NL (occurrence: NL)
  Receive Date: 20240227
  Receipt Date: 20240402
  Transmission Date: 20240716
  Serious: Yes (Life-Threatening, Hospitalization, Other)
  Sender: FDA-Public Use
  Company Number: NL-SANDOZ-SDZ2024NL018024

PATIENT
  Age: 18 Year
  Sex: Female
  Weight: 65 kg

DRUGS (1)
  1. CARBAMAZEPINE [Suspect]
     Active Substance: CARBAMAZEPINE
     Indication: Product used for unknown indication
     Dosage: INGESTED 43 ER TABLETS OF CBZ 400MG
     Route: 065

REACTIONS (10)
  - Respiratory failure [Unknown]
  - Depressed level of consciousness [Unknown]
  - Toxicity to various agents [Unknown]
  - Somnolence [Unknown]
  - Overdose [Unknown]
  - Sinus tachycardia [Unknown]
  - Hepatic enzyme increased [Unknown]
  - Prescription drug used without a prescription [Unknown]
  - Headache [Unknown]
  - Myalgia [Unknown]
